FAERS Safety Report 11426078 (Version 1)
Quarter: 2015Q3

REPORT INFORMATION
  Report Type: Spontaneous
  Country: US (occurrence: US)
  Receive Date: 20150821
  Receipt Date: 20150821
  Transmission Date: 20151125
  Serious: No
  Sender: FDA-Public Use
  Company Number: US-ELI_LILLY_AND_COMPANY-US201304008261

PATIENT

DRUGS (7)
  1. CIALIS [Suspect]
     Active Substance: TADALAFIL
     Dosage: 1 DF, QD
     Route: 048
     Dates: start: 20130422
  2. ALCOHOL. [Concomitant]
     Active Substance: ALCOHOL
     Dosage: 1 DF, UNKNOWN
  3. PROSCAR [Concomitant]
     Active Substance: FINASTERIDE
     Indication: BENIGN PROSTATIC HYPERPLASIA
     Dosage: 1 DF, UNKNOWN
  4. LIPITOR [Concomitant]
     Active Substance: ATORVASTATIN CALCIUM
     Dosage: 1 DF, UNKNOWN
  5. CIALIS [Suspect]
     Active Substance: TADALAFIL
     Indication: BENIGN PROSTATIC HYPERPLASIA
     Dosage: 5 MG, QD
     Route: 048
     Dates: start: 20130412, end: 20130416
  6. CIALIS [Suspect]
     Active Substance: TADALAFIL
     Dosage: 1 DF, QD
     Route: 048
     Dates: start: 20130417, end: 20130418
  7. CIALIS [Suspect]
     Active Substance: TADALAFIL
     Dosage: 5 MG, QD
     Route: 048
     Dates: start: 20130419, end: 20130420

REACTIONS (5)
  - Back pain [Unknown]
  - Headache [Unknown]
  - Wrong technique in product usage process [Unknown]
  - Pain [Unknown]
  - Neck pain [Unknown]
